FAERS Safety Report 6331018-X (Version None)
Quarter: 2009Q3

REPORT INFORMATION
  Report Type: 
  Country: None (occurrence: None)
  Receive Date: 20090827
  Receipt Date: 20090821
  Transmission Date: 20100115
  Serious: Yes (Other)
  Sender: FDA-Public Use
  Company Number: A0803520A

PATIENT
  Age: 58 Year
  Sex: Female

DRUGS (14)
  1. FLOVENT [Suspect]
     Indication: ASTHMA
     Dosage: 1PUFF TWICE PER DAY
     Route: 055
  2. PROVENTIL-HFA [Concomitant]
  3. LOTREL [Concomitant]
  4. BENAZAPRIL [Concomitant]
  5. FLUTICASONE PROPIONATE [Concomitant]
  6. LORATADINE [Concomitant]
  7. PREMPRO [Concomitant]
  8. CALCIUM [Concomitant]
  9. VITAMIN D [Concomitant]
  10. GLUCOSAMINE WITH CHONDROITIN [Concomitant]
  11. VITAMINS [Concomitant]
  12. UNSPECIFIED MEDICATION [Concomitant]
  13. COENZYME Q10 [Concomitant]
  14. FISH OIL [Concomitant]

REACTIONS (8)
  - ASTHMA [None]
  - CONTUSION [None]
  - DRUG INEFFECTIVE [None]
  - INHALATION THERAPY [None]
  - LARYNGITIS [None]
  - SKIN FRAGILITY [None]
  - SKIN LACERATION [None]
  - UPPER RESPIRATORY TRACT CONGESTION [None]
